FAERS Safety Report 8984519 (Version 3)
Quarter: 2013Q3

REPORT INFORMATION
  Report Type: Report from Study
  Country: JP (occurrence: JP)
  Receive Date: 20121226
  Receipt Date: 20130718
  Transmission Date: 20140515
  Serious: Yes (Other)
  Sender: FDA-Public Use
  Company Number: JP-PFIZER INC-2012322238

PATIENT
  Age: 54 Year
  Sex: Female
  Weight: 46.8 kg

DRUGS (7)
  1. PREGABALIN [Suspect]
     Indication: NEURALGIA
     Dosage: 75 MG, 2X/DAY
     Dates: start: 20120314, end: 20120320
  2. MECOBAMIDE [Suspect]
     Indication: PAIN
     Dosage: 500 UG, 3X/DAY
     Route: 048
     Dates: start: 20120305, end: 20120321
  3. MECOBAMIDE [Suspect]
     Indication: POST HERPETIC NEURALGIA
  4. ACETAMINOPHEN [Concomitant]
     Dosage: 400 MG, 1X/DAY
     Route: 048
     Dates: start: 20120307, end: 20120321
  5. MEPIVACAINE [Concomitant]
     Indication: PAIN
     Dosage: 2 ML/HOUR
     Route: 008
     Dates: start: 20120305, end: 20120319
  6. MEPIVACAINE [Concomitant]
     Dosage: 12 ML, 1X/DAY
     Dates: start: 20120321, end: 20120326
  7. LACTEC [Concomitant]
     Dosage: 500 ML, 2X/DAY
     Route: 042
     Dates: start: 20120320, end: 20120326

REACTIONS (1)
  - Liver disorder [Recovered/Resolved]
